FAERS Safety Report 7555102-8 (Version None)
Quarter: 2011Q2

REPORT INFORMATION
  Report Type: 
  Country: None (occurrence: None)
  Receive Date: 20110617
  Receipt Date: 20110613
  Transmission Date: 20111010
  Serious: Yes (Hospitalization)
  Sender: FDA-Public Use
  Company Number: IL-BRISTOL-MYERS SQUIBB COMPANY-14604482

PATIENT
  Age: 78 Year
  Sex: Female

DRUGS (16)
  1. MONONIT [Concomitant]
     Route: 048
  2. DISOTHIAZIDE [Concomitant]
     Route: 048
  3. FUSID [Concomitant]
     Route: 048
  4. GLUCOMIN [Concomitant]
     Route: 048
  5. COUMADIN [Concomitant]
     Dosage: DOSAGE ACCORDING TO PT VALUES
     Route: 048
  6. APIXABAN [Suspect]
     Indication: THROMBOSIS PROPHYLAXIS
     Dosage: 1 DF= 1 TAB  2X 1 TAB
     Route: 048
     Dates: start: 20090208
  7. ATACAND [Concomitant]
     Route: 048
  8. BISOPROLOL FUMARATE [Concomitant]
     Route: 048
  9. LEVEMIR [Concomitant]
     Route: 048
  10. REPAGLINIDE [Concomitant]
     Route: 048
  11. OMEPRADEX [Concomitant]
     Route: 048
  12. SIMOVIL [Concomitant]
     Route: 048
  13. PLACEBO [Suspect]
     Indication: THROMBOSIS PROPHYLAXIS
     Route: 048
     Dates: start: 20090208
  14. MICROPIRIN [Concomitant]
     Route: 048
  15. CITALOPRAM HYDROBROMIDE [Concomitant]
     Route: 048
  16. IKACOR [Concomitant]
     Route: 048

REACTIONS (1)
  - HAEMATOMA [None]
